FAERS Safety Report 7420616-8 (Version None)
Quarter: 2011Q2

REPORT INFORMATION
  Report Type: 
  Country: None (occurrence: None)
  Receive Date: 20110418
  Receipt Date: 20110408
  Transmission Date: 20111010
  Serious: No
  Sender: FDA-Public Use
  Company Number: GB-B.I. PHARMACEUTICALS,INC./RIDGEFIELD-2011-UK-00369UK

PATIENT

DRUGS (3)
  1. PERSANTIN [Suspect]
     Indication: MALAISE
  2. PERSANTIN [Suspect]
     Indication: TRANSIENT ISCHAEMIC ATTACK
  3. PERSANTIN [Suspect]
     Indication: FEELING ABNORMAL

REACTIONS (1)
  - NO ADVERSE EVENT [None]
